FAERS Safety Report 25927130 (Version 1)
Quarter: 2025Q4

REPORT INFORMATION
  Report Type: Spontaneous
  Country: JP (occurrence: JP)
  Receive Date: 20251015
  Receipt Date: 20251015
  Transmission Date: 20260118
  Serious: Yes (Death, Other)
  Sender: B. BRAUN MEDICAL INC.
  Company Number: JP-B. Braun Medical Inc.-JP-BBM-202503982

PATIENT

DRUGS (2)
  1. POTASSIUM CHLORIDE [Suspect]
     Active Substance: POTASSIUM CHLORIDE
     Indication: Abortion induced
  2. 1% Propofol [Concomitant]
     Indication: Anaesthesia

REACTIONS (3)
  - Foetal death [Fatal]
  - Foetal exposure during pregnancy [Fatal]
  - Off label use [Fatal]
